FAERS Safety Report 4666254-1 (Version None)
Quarter: 2005Q2

REPORT INFORMATION
  Report Type: 
  Country: None (occurrence: None)
  Receive Date: 20050518
  Receipt Date: 20050518
  Transmission Date: 20051028
  Serious: Yes (Hospitalization)
  Sender: FDA-Public Use
  Company Number: None

PATIENT
  Age: 44 Year
  Sex: Female
  Weight: 78.0187 kg

DRUGS (6)
  1. GEODON [Suspect]
     Indication: BIPOLAR DISORDER
     Dosage: 30 MG Q AM /160 MG Q PM
     Dates: start: 20050314
  2. LISINOPRIL [Concomitant]
  3. HYDROCHLOROTHIAZIDE [Concomitant]
  4. COGENTIN [Concomitant]
  5. AMBIEN [Concomitant]
  6. XANAX XR [Concomitant]

REACTIONS (6)
  - BODY TEMPERATURE INCREASED [None]
  - CONFUSIONAL STATE [None]
  - DRUG DEPENDENCE [None]
  - HYPOTENSION [None]
  - LETHARGY [None]
  - SEPSIS [None]
